FAERS Safety Report 10854487 (Version 1)
Quarter: 2015Q1

REPORT INFORMATION
  Report Type: Spontaneous
  Country: US (occurrence: None)
  Receive Date: 20150218
  Receipt Date: 20150218
  Transmission Date: 20150721
  Serious: No
  Sender: FDA-Public Use
  Company Number: None

PATIENT
  Age: 39 Year
  Sex: Male
  Weight: 72.58 kg

DRUGS (1)
  1. HABITROL [Suspect]
     Active Substance: NICOTINE
     Indication: SMOKING CESSATION THERAPY
     Dosage: APPLIED AS MEDICATED PATCH TO SKIN
     Dates: start: 20150203, end: 20150217

REACTIONS (4)
  - Application site irritation [None]
  - Application site pruritus [None]
  - Application site pain [None]
  - Hypersensitivity [None]

NARRATIVE: CASE EVENT DATE: 20150203
